FAERS Safety Report 25706995 (Version 2)
Quarter: 2025Q3

REPORT INFORMATION
  Report Type: Report from Study
  Country: CA (occurrence: CA)
  Receive Date: 20250820
  Receipt Date: 20250827
  Transmission Date: 20251021
  Serious: Yes (Death)
  Sender: PFIZER
  Company Number: CA-PFIZER INC-202500164351

PATIENT
  Age: 79 Year
  Sex: Female

DRUGS (3)
  1. METHYLPREDNISOLONE SODIUM SUCCINATE [Suspect]
     Active Substance: METHYLPREDNISOLONE SODIUM SUCCINATE
  2. VECURONIUM [Suspect]
     Active Substance: VECURONIUM BROMIDE
  3. ATRACURIUM [Suspect]
     Active Substance: ATRACURIUM

REACTIONS (2)
  - Necrotising myositis [Fatal]
  - Blood creatine phosphokinase increased [Fatal]
